FAERS Safety Report 4777800-1 (Version None)
Quarter: 2005Q3

REPORT INFORMATION
  Report Type: 
  Country: None (occurrence: None)
  Receive Date: 20050925
  Receipt Date: 20050913
  Transmission Date: 20060218
  Serious: Yes (Other)
  Sender: FDA-Public Use
  Company Number: US-JNJFOC-20050802199

PATIENT
  Sex: Male
  Weight: 73.48 kg

DRUGS (12)
  1. REMICADE [Suspect]
     Indication: RHEUMATOID ARTHRITIS
     Route: 042
  2. DILTIAZEM CD [Concomitant]
  3. LASIX [Concomitant]
  4. PROTONIX [Concomitant]
  5. FOLIC ACID [Concomitant]
  6. VICODIN [Concomitant]
  7. VICODIN [Concomitant]
     Indication: PAIN
     Dosage: 5/500
  8. LORAZEPAM [Concomitant]
     Indication: ANXIETY
  9. METHOTREXATE [Concomitant]
     Indication: RHEUMATOID ARTHRITIS
  10. LISINOPRIL [Concomitant]
     Indication: HYPERTENSION
  11. PRILOSEC [Concomitant]
  12. POTASSIUM [Concomitant]

REACTIONS (17)
  - ABDOMINAL PAIN [None]
  - ANOREXIA [None]
  - ASPARTATE AMINOTRANSFERASE INCREASED [None]
  - ASTHENIA [None]
  - DIFFICULTY IN WALKING [None]
  - DYSPHAGIA [None]
  - GALLBLADDER DISORDER [None]
  - HAEMOGLOBIN DECREASED [None]
  - HAEMORRHAGE [None]
  - HODGKIN'S DISEASE [None]
  - HYPERHIDROSIS [None]
  - LYMPHADENOPATHY [None]
  - NON-HODGKIN'S LYMPHOMA [None]
  - PLATELET COUNT DECREASED [None]
  - PYREXIA [None]
  - RED BLOOD CELL SEDIMENTATION RATE INCREASED [None]
  - SPLENOMEGALY [None]
